FAERS Safety Report 23408585 (Version 6)
Quarter: 2025Q1

REPORT INFORMATION
  Report Type: Spontaneous
  Country: US (occurrence: US)
  Receive Date: 20240117
  Receipt Date: 20250317
  Transmission Date: 20250409
  Serious: No
  Sender: SANOFI AVENTIS
  Company Number: US-SA-SAC20240111002101

PATIENT
  Sex: Male
  Weight: 72.562 kg

DRUGS (14)
  1. CEREZYME [Suspect]
     Active Substance: IMIGLUCERASE
     Indication: Gaucher^s disease
     Dosage: 4000 U, QOW
     Route: 042
     Dates: start: 20220920
  2. CEREZYME [Suspect]
     Active Substance: IMIGLUCERASE
     Dosage: 4400 U, QOW
     Route: 042
  3. AMOXICILLIN [Suspect]
     Active Substance: AMOXICILLIN
  4. SODIUM CHLORIDE [Concomitant]
     Active Substance: SODIUM CHLORIDE
  5. EPINEPHRINE [Concomitant]
     Active Substance: EPINEPHRINE
  6. STERILE WATER [Concomitant]
     Active Substance: WATER
  7. VITAMIN D NOS [Concomitant]
     Active Substance: CHOLECALCIFEROL\ERGOCALCIFEROL
  8. ALEVE [Concomitant]
     Active Substance: NAPROXEN SODIUM
  9. DIPHENHYDRAMINE HYDROCHLORIDE [Concomitant]
     Active Substance: DIPHENHYDRAMINE HYDROCHLORIDE
  10. SODIUM CHLORIDE [Concomitant]
     Active Substance: SODIUM CHLORIDE
  11. DIPHENHYDRAMINE [Concomitant]
     Active Substance: DIPHENHYDRAMINE
  12. HYDROCORTISONE [Concomitant]
     Active Substance: HYDROCORTISONE
  13. PRAMOXINE [Concomitant]
     Active Substance: PRAMOXINE
  14. CEFDINIR [Concomitant]
     Active Substance: CEFDINIR

REACTIONS (4)
  - Influenza [Unknown]
  - Sinusitis [Unknown]
  - Pharyngitis streptococcal [Unknown]
  - Drug hypersensitivity [Unknown]

NARRATIVE: CASE EVENT DATE: 20250301
